FAERS Safety Report 7759280-7 (Version None)
Quarter: 2011Q3

REPORT INFORMATION
  Report Type: 
  Country: None (occurrence: None)
  Receive Date: 20110919
  Receipt Date: 20110908
  Transmission Date: 20111222
  Serious: Yes (Other)
  Sender: FDA-Public Use
  Company Number: HU-ASTRAZENECA-2011SE54640

PATIENT
  Age: 54 Year
  Sex: Female

DRUGS (3)
  1. QUETIAPINE [Suspect]
     Indication: SCHIZOPHRENIA
     Route: 048
  2. CLONAZEPAM [Concomitant]
     Route: 048
  3. CINOLAZEPAM [Concomitant]
     Route: 048

REACTIONS (3)
  - SUICIDAL IDEATION [None]
  - IMPULSIVE BEHAVIOUR [None]
  - IRRITABILITY [None]
